FAERS Safety Report 5635536-9 (Version None)
Quarter: 2008Q1

REPORT INFORMATION
  Report Type: 
  Country: None (occurrence: None)
  Receive Date: 20080222
  Receipt Date: 20080211
  Transmission Date: 20080703
  Serious: Yes (Death)
  Sender: FDA-Public Use
  Company Number: US-GENENTECH-256465

PATIENT
  Age: 75 Year
  Sex: Female

DRUGS (8)
  1. RITUXAN [Suspect]
     Indication: B-CELL LYMPHOMA
     Dosage: 375 MG/M2, 1/WEEK
     Route: 042
  2. FLUDARABINE [Suspect]
     Indication: B-CELL LYMPHOMA
     Dosage: 25 MG/M2, UNK
     Route: 042
  3. MITOXANTRONE [Suspect]
     Indication: B-CELL LYMPHOMA
     Dosage: 10 MG/M2, UNK
     Route: 042
  4. DEXAMETHASONE TAB [Suspect]
     Indication: B-CELL LYMPHOMA
     Dosage: 40 MG, UNK
     Route: 048
  5. CYCLOPHOSPHAMIDE [Suspect]
     Indication: B-CELL LYMPHOMA
     Dosage: UNK, UNKNOWN
     Route: 065
  6. DOXORUBICIN HCL [Suspect]
     Indication: B-CELL LYMPHOMA
     Dosage: UNK, UNKNOWN
     Route: 065
  7. VINCRISTINE [Suspect]
     Indication: B-CELL LYMPHOMA
     Dosage: UNK, UNKNOWN
     Route: 065
  8. PREDNISONE TAB [Suspect]
     Indication: B-CELL LYMPHOMA
     Dosage: UNK, UNKNOWN
     Route: 065

REACTIONS (1)
  - ACUTE MYELOID LEUKAEMIA [None]
